FAERS Safety Report 8224343-9 (Version None)
Quarter: 2012Q1

REPORT INFORMATION
  Report Type: 
  Country: None (occurrence: None)
  Receive Date: 20120319
  Receipt Date: 20120308
  Transmission Date: 20120608
  Serious: Yes (Hospitalization, Other)
  Sender: FDA-Public Use
  Company Number: AUR-APL-2012-01390

PATIENT
  Age: 53 Year
  Sex: Male
  Weight: 113 kg

DRUGS (8)
  1. VISTARIL (HYDROXYZINE HYDROCHLORIDE) [Suspect]
     Indication: ANXIETY
     Dosage: 50 MG (25 MG,2 IN 1 D)
  2. VISTARIL (HYDROXYZINE HYDROCHLORIDE) [Suspect]
     Indication: DEPRESSION
     Dosage: 50 MG (25 MG,2 IN 1 D)
  3. AMIODARONE HCL [Concomitant]
  4. METOPROLOL TARTRATE [Concomitant]
  5. LISINOPRIL [Suspect]
     Indication: HYPERTENSION
     Dosage: (20 MG,1 D)
  6. LIPITOR [Suspect]
     Indication: BLOOD CHOLESTEROL INCREASED
     Dosage: (20 MG,1 D)
  7. ZOLOFT [Suspect]
     Indication: DEPRESSION
     Dosage: (100 MG,1 D)
  8. IMDUR-ER (ISOSORBIDE MONONITRATE) [Concomitant]

REACTIONS (6)
  - PRURITUS [None]
  - ALCOHOL USE [None]
  - CORONARY ARTERY OCCLUSION [None]
  - ANXIETY [None]
  - INTERMITTENT EXPLOSIVE DISORDER [None]
  - DEPRESSION [None]
